FAERS Safety Report 6121269-1 (Version None)
Quarter: 2009Q1

REPORT INFORMATION
  Report Type: 
  Country: None (occurrence: None)
  Receive Date: 20090313
  Receipt Date: 20090312
  Transmission Date: 20090719
  Serious: Yes (Hospitalization)
  Sender: FDA-Public Use
  Company Number: SP02079

PATIENT
  Age: 69 Year
  Sex: Male

DRUGS (3)
  1. VISICOL [Suspect]
     Dosage: 50 GM, ORAL
     Route: 048
     Dates: start: 20080924, end: 20080924
  2. VALSARTAN [Concomitant]
  3. FLUVASTATIN SODIUM [Concomitant]

REACTIONS (4)
  - BLOOD PHOSPHORUS INCREASED [None]
  - RENAL FAILURE ACUTE [None]
  - RENAL FAILURE CHRONIC [None]
  - THERAPEUTIC RESPONSE DECREASED [None]
